FAERS Safety Report 4870058-4 (Version None)
Quarter: 2005Q4

REPORT INFORMATION
  Report Type: 
  Country: None (occurrence: None)
  Receive Date: 20051227
  Receipt Date: 20051220
  Transmission Date: 20060501
  Serious: Yes (Other)
  Sender: FDA-Public Use
  Company Number: HQWYE103520DEC05

PATIENT
  Age: 6 Year
  Sex: Female
  Weight: 25.45 kg

DRUGS (3)
  1. PHENERGAN [Suspect]
     Dosage: TWO TABLETS, ^8{=24 HR^
  2. CHILDREN'S MOTRIN [Suspect]
     Dosage: 1000MG; ^8{=24 HR^
  3. TYLENOL CHILDREN'S (PARACETAMOL, ) [Suspect]
     Dosage: 1600 MG; ^}8{=24 HR^

REACTIONS (4)
  - COORDINATION ABNORMAL [None]
  - DELUSION [None]
  - HALLUCINATION [None]
  - INAPPROPRIATE SCHEDULE OF DRUG ADMINISTRATION [None]
